FAERS Safety Report 13389734 (Version 3)
Quarter: 2017Q2

REPORT INFORMATION
  Report Type: Report from Study
  Country: ES (occurrence: ES)
  Receive Date: 20170331
  Receipt Date: 20170530
  Transmission Date: 20170830
  Serious: Yes (Hospitalization)
  Sender: FDA-Public Use
  Company Number: ES-ROCHE-1905878

PATIENT
  Age: 64 Year
  Sex: Male
  Weight: 71 kg

DRUGS (31)
  1. RECTOGESIC (SPAIN) [Concomitant]
     Indication: PROPHYLAXIS
     Dosage: 1 APPLICATION
     Route: 061
  2. SIMVASTATINE [Concomitant]
     Active Substance: SIMVASTATIN
     Route: 048
  3. ATEZOLIZUMAB [Suspect]
     Active Substance: ATEZOLIZUMAB
     Indication: NEOPLASM
     Dosage: THE MOST RECENT DOSE OF ATEZOLIZUMAB PRIOR TO THE ONSET OF THE EVENT WAS ON 12/JAN/2017 (START TIME
     Route: 042
     Dates: start: 20150820
  4. HIDROALTESONA [Concomitant]
     Route: 048
     Dates: start: 20150810, end: 20150823
  5. HIDROALTESONA [Concomitant]
     Route: 048
     Dates: start: 20150930, end: 20151006
  6. POLARAMINE [Concomitant]
     Active Substance: DEXCHLORPHENIRAMINE MALEATE
     Indication: PRURITUS
     Route: 048
     Dates: start: 20151203
  7. EUTIROX [Concomitant]
     Active Substance: LEVOTHYROXINE SODIUM
     Indication: HYPOTHYROIDISM
     Route: 048
     Dates: start: 20151203, end: 20151222
  8. BUDESONIDE. [Concomitant]
     Active Substance: BUDESONIDE
     Route: 055
     Dates: start: 20160126
  9. AZITROMYCINE [Concomitant]
     Indication: INFECTION PROPHYLAXIS
     Route: 048
     Dates: start: 20151207, end: 20151209
  10. HIDROALTESONA [Concomitant]
     Indication: RENAL CANCER
     Dosage: 40MG-0-20MG
     Route: 048
     Dates: start: 20140904, end: 20150802
  11. CALCIUM GLUCONATE. [Concomitant]
     Active Substance: CALCIUM GLUCONATE
     Indication: CHRONIC KIDNEY DISEASE
     Dosage: 1 AMPULE
     Route: 042
     Dates: start: 20161114, end: 20161114
  12. OMEPRAZOL [Concomitant]
     Active Substance: OMEPRAZOLE
     Indication: GASTRITIS PROPHYLAXIS
     Route: 048
  13. EUTIROX [Concomitant]
     Active Substance: LEVOTHYROXINE SODIUM
     Route: 065
     Dates: start: 20151223, end: 20160112
  14. HIDROALTESONA [Concomitant]
     Route: 048
     Dates: start: 20151112, end: 20151207
  15. HIDROALTESONA [Concomitant]
     Route: 048
     Dates: start: 20151223
  16. PARACETAMOL [Concomitant]
     Active Substance: ACETAMINOPHEN
     Route: 048
  17. RESINCALCIO [Concomitant]
     Active Substance: CALCIUM POLYSTYRENE SULFONATE
     Indication: HYPERKALAEMIA
     Route: 048
     Dates: start: 20160519, end: 20160630
  18. BICARBONATE [Concomitant]
     Active Substance: BICARBONATE ION
     Indication: BLOOD CREATININE INCREASED
     Route: 042
     Dates: start: 20161114, end: 20161114
  19. HIDROALTESONA [Concomitant]
     Route: 048
     Dates: start: 20151208, end: 20151222
  20. BICARBONATE [Concomitant]
     Active Substance: BICARBONATE ION
     Route: 048
     Dates: start: 20170202, end: 20170207
  21. HIDROALTESONA [Concomitant]
     Route: 048
     Dates: start: 20151007, end: 20151013
  22. PARACETAMOL [Concomitant]
     Active Substance: ACETAMINOPHEN
     Indication: CATARRH
     Route: 048
     Dates: start: 20151231, end: 20160204
  23. INSULIN [Concomitant]
     Active Substance: INSULIN NOS
     Route: 042
     Dates: start: 20161114, end: 20161114
  24. HIDROALTESONA [Concomitant]
     Dosage: 40MG-0-10MG
     Route: 048
     Dates: start: 20150803, end: 20150809
  25. HIDROALTESONA [Concomitant]
     Route: 048
     Dates: start: 20150824, end: 20150929
  26. CETIRIZINE [Concomitant]
     Active Substance: CETIRIZINE HYDROCHLORIDE
     Indication: PRURITUS
     Route: 048
     Dates: start: 20151112, end: 20151202
  27. EUTIROX [Concomitant]
     Active Substance: LEVOTHYROXINE SODIUM
     Route: 048
     Dates: start: 20160113
  28. BICARBONATE [Concomitant]
     Active Substance: BICARBONATE ION
     Indication: CHRONIC KIDNEY DISEASE
     Dosage: MOLAR
     Route: 065
     Dates: start: 20161024, end: 20161104
  29. METILPREDNISOLONE [Concomitant]
     Active Substance: METHYLPREDNISOLONE
     Indication: CHRONIC KIDNEY DISEASE
     Route: 048
     Dates: start: 20161021, end: 20161101
  30. METILPREDNISOLONE [Concomitant]
     Active Substance: METHYLPREDNISOLONE
     Route: 042
     Dates: start: 20161102, end: 20161104
  31. INSULIN [Concomitant]
     Active Substance: INSULIN NOS
     Indication: CHRONIC KIDNEY DISEASE
     Route: 042
     Dates: start: 20161114, end: 20161114

REACTIONS (1)
  - Hyperkalaemia [Recovered/Resolved]

NARRATIVE: CASE EVENT DATE: 20170304
